FAERS Safety Report 7427706-4 (Version None)
Quarter: 2011Q2

REPORT INFORMATION
  Report Type: 
  Country: None (occurrence: None)
  Receive Date: 20110411
  Receipt Date: 20110331
  Transmission Date: 20111010
  Serious: Yes (Hospitalization)
  Sender: FDA-Public Use
  Company Number: UTC-006050

PATIENT
  Age: 71 Year
  Sex: Female
  Weight: 59.09 kg

DRUGS (2)
  1. REMODULIN [Suspect]
     Dosage: 118.08 UG/KG (0.082 UG/KG,1 IN 1 MIN), SUBCUTANEOUS`
     Route: 058
     Dates: start: 20100720
  2. ADCIRCA [Concomitant]

REACTIONS (3)
  - FATIGUE [None]
  - NAUSEA [None]
  - ASTHENIA [None]
